FAERS Safety Report 7643253-9 (Version None)
Quarter: 2011Q3

REPORT INFORMATION
  Report Type: 
  Country: None (occurrence: None)
  Receive Date: 20110729
  Receipt Date: 20110719
  Transmission Date: 20111222
  Serious: No
  Sender: FDA-Public Use
  Company Number: US-BIOGENIDEC-2011BI027021

PATIENT
  Age: 40 Year
  Sex: Female

DRUGS (2)
  1. STEROIDS (NOS) [Concomitant]
  2. TYSABRI [Suspect]
     Indication: MULTIPLE SCLEROSIS
     Route: 042
     Dates: start: 20110419

REACTIONS (3)
  - NAUSEA [None]
  - FATIGUE [None]
  - PAIN IN EXTREMITY [None]
